FAERS Safety Report 18497816 (Version 2)
Quarter: 2020Q4

REPORT INFORMATION
  Report Type: Spontaneous
  Country: GB (occurrence: MG)
  Receive Date: 20201112
  Receipt Date: 20201202
  Transmission Date: 20210114
  Serious: Yes (Death, Other)
  Sender: FDA-Public Use
  Company Number: GB-GALDERMA-GB2020048210

PATIENT
  Age: 19 Year
  Sex: Female

DRUGS (1)
  1. DOXYCYCLINE. [Suspect]
     Active Substance: DOXYCYCLINE
     Indication: MALARIA PROPHYLAXIS
     Route: 065

REACTIONS (10)
  - Paranoia [Fatal]
  - Mood swings [Unknown]
  - Insomnia [Unknown]
  - Intentional product use issue [Recovered/Resolved]
  - Psychotic disorder [Unknown]
  - Confusional state [Unknown]
  - Frustration tolerance decreased [Unknown]
  - Anxiety [Unknown]
  - Injury [Fatal]
  - Delirium [Unknown]

NARRATIVE: CASE EVENT DATE: 201907
